FAERS Safety Report 19233702 (Version 3)
Quarter: 2022Q2

REPORT INFORMATION
  Report Type: Spontaneous
  Country: US (occurrence: None)
  Receive Date: 20210507
  Receipt Date: 20220503
  Transmission Date: 20220721
  Serious: Yes (Other)
  Sender: FDA-Public Use
  Company Number: 2021A390454

PATIENT
  Age: 45 Year
  Sex: Female

DRUGS (63)
  1. NEXIUM [Suspect]
     Active Substance: ESOMEPRAZOLE MAGNESIUM
     Indication: Crohn^s disease
     Route: 048
     Dates: start: 2005, end: 2018
  2. NEXIUM [Suspect]
     Active Substance: ESOMEPRAZOLE MAGNESIUM
     Indication: Crohn^s disease
     Route: 048
     Dates: start: 2005, end: 2018
  3. PRILOSEC [Suspect]
     Active Substance: OMEPRAZOLE MAGNESIUM
     Indication: Crohn^s disease
     Route: 048
     Dates: start: 2005, end: 2018
  4. PRILOSEC [Suspect]
     Active Substance: OMEPRAZOLE MAGNESIUM
     Indication: Crohn^s disease
     Route: 048
     Dates: start: 2005
  5. PRILOSEC [Suspect]
     Active Substance: OMEPRAZOLE MAGNESIUM
     Indication: Crohn^s disease
     Dosage: GENERIC
     Route: 065
     Dates: start: 2013, end: 2020
  6. DEXILANT [Suspect]
     Active Substance: DEXLANSOPRAZOLE
     Indication: Crohn^s disease
     Route: 065
     Dates: start: 2005, end: 2018
  7. DEXILANT [Suspect]
     Active Substance: DEXLANSOPRAZOLE
     Indication: Crohn^s disease
     Route: 065
     Dates: start: 2009, end: 2018
  8. PREVACID [Suspect]
     Active Substance: LANSOPRAZOLE
     Indication: Crohn^s disease
     Route: 065
     Dates: start: 2005, end: 2018
  9. PREVACID 24 HR [Suspect]
     Active Substance: LANSOPRAZOLE
     Indication: Crohn^s disease
     Route: 065
     Dates: start: 2005, end: 2018
  10. PREVACID 24 HR [Suspect]
     Active Substance: LANSOPRAZOLE
     Indication: Crohn^s disease
     Route: 065
     Dates: start: 2009, end: 2018
  11. PROTONIX [Suspect]
     Active Substance: PANTOPRAZOLE SODIUM
     Indication: Abdominal discomfort
     Dosage: 40.0MG UNKNOWN
     Route: 042
     Dates: start: 2010
  12. PROTONIX [Suspect]
     Active Substance: PANTOPRAZOLE SODIUM
     Indication: Abdominal discomfort
     Dosage: 40.0MG UNKNOWN
     Route: 042
     Dates: start: 2016
  13. PROTONIX [Suspect]
     Active Substance: PANTOPRAZOLE SODIUM
     Indication: Abdominal discomfort
     Dosage: 40.0MG UNKNOWN
     Route: 042
     Dates: start: 2019
  14. PROTONIX [Suspect]
     Active Substance: PANTOPRAZOLE SODIUM
     Indication: Crohn^s disease
     Route: 065
     Dates: end: 2019
  15. PROTONIX [Suspect]
     Active Substance: PANTOPRAZOLE SODIUM
     Indication: Abdominal discomfort
     Route: 065
     Dates: end: 2019
  16. PROTONIX [Suspect]
     Active Substance: PANTOPRAZOLE SODIUM
     Indication: Crohn^s disease
     Dosage: GENERIC
     Route: 065
     Dates: start: 2016, end: 2019
  17. PROTONIX [Suspect]
     Active Substance: PANTOPRAZOLE SODIUM
     Indication: Abdominal discomfort
     Dosage: GENERIC
     Route: 065
     Dates: start: 2016, end: 2019
  18. FAMOTIDINE [Concomitant]
     Active Substance: FAMOTIDINE
  19. DOXEPIN [Concomitant]
     Active Substance: DOXEPIN
     Indication: Depression
  20. TRAMADOL [Concomitant]
     Active Substance: TRAMADOL
     Indication: Pain
  21. ALPRAZOLAM [Concomitant]
     Active Substance: ALPRAZOLAM
  22. ACETAMINOPHEN\HYDROCODONE BITARTRATE [Concomitant]
     Active Substance: ACETAMINOPHEN\HYDROCODONE BITARTRATE
  23. ENDOCET [Concomitant]
     Active Substance: ACETAMINOPHEN\OXYCODONE HYDROCHLORIDE
  24. ACETAMINOPHEN\PROPOXYPHENE [Concomitant]
     Active Substance: ACETAMINOPHEN\PROPOXYPHENE
  25. PROMETHAZINE [Concomitant]
     Active Substance: PROMETHAZINE HYDROCHLORIDE
  26. CYCLOBENZAPRINE [Concomitant]
     Active Substance: CYCLOBENZAPRINE
  27. MEPERIDINE [Concomitant]
     Active Substance: MEPERIDINE
  28. MORPHINE SULFATE [Concomitant]
     Active Substance: MORPHINE SULFATE
  29. CLINDAMYCIN HYDROCHLORIDE [Concomitant]
     Active Substance: CLINDAMYCIN HYDROCHLORIDE
  30. APRISO [Concomitant]
     Active Substance: MESALAMINE
  31. PREDNISONE [Concomitant]
     Active Substance: PREDNISONE
  32. VIBERBI [Concomitant]
  33. FLUCONAZONE [Concomitant]
  34. UCERIS [Concomitant]
     Active Substance: BUDESONIDE
  35. DIPHENOXYLATE [Concomitant]
     Active Substance: DIPHENOXYLATE
  36. ATENOLOL [Concomitant]
     Active Substance: ATENOLOL
  37. XIFAXAN [Concomitant]
     Active Substance: RIFAXIMIN
  38. TRINTELLIX [Concomitant]
     Active Substance: VORTIOXETINE HYDROBROMIDE
  39. METOPROLOL SUCCINATE [Concomitant]
     Active Substance: METOPROLOL SUCCINATE
  40. CICYCLOMINE HYDROCHLORIDE [Concomitant]
  41. RANITIDINE HYDROCHLORIDE [Concomitant]
     Active Substance: RANITIDINE HYDROCHLORIDE
  42. TIZANIDINE HYDROCHLORIDE [Concomitant]
     Active Substance: TIZANIDINE HYDROCHLORIDE
  43. LISINOPRIL [Concomitant]
     Active Substance: LISINOPRIL
  44. LYRICA [Concomitant]
     Active Substance: PREGABALIN
  45. CLONAZEPAM [Concomitant]
     Active Substance: CLONAZEPAM
  46. VITAMIN B6 [Concomitant]
     Active Substance: PYRIDOXINE HYDROCHLORIDE
  47. ISONIAZID [Concomitant]
     Active Substance: ISONIAZID
  48. ONDANSETRON [Concomitant]
     Active Substance: ONDANSETRON
  49. GABAPENTIN [Concomitant]
     Active Substance: GABAPENTIN
  50. SUCRALFATE [Concomitant]
     Active Substance: SUCRALFATE
  51. LORAZEPAM [Concomitant]
     Active Substance: LORAZEPAM
  52. SUPREP BOWEL [Concomitant]
  53. METHYLPREDNISOLONE [Concomitant]
     Active Substance: METHYLPREDNISOLONE
  54. AMOX TR-K CLAV [Concomitant]
  55. VENLAFAXINE [Concomitant]
     Active Substance: VENLAFAXINE HYDROCHLORIDE
  56. PROGESTRONE [Concomitant]
  57. DOTTI [Concomitant]
     Active Substance: ESTRADIOL
  58. CHLOROPHYLLIN COPPER COMPLEX/CHLORDIAZEPOXIDE/HYOSCINE/DICYCLOVERINE/A [Concomitant]
  59. LOMOTIL [Concomitant]
     Active Substance: ATROPINE SULFATE\DIPHENOXYLATE HYDROCHLORIDE
  60. COLESTID [Concomitant]
     Active Substance: COLESTIPOL HYDROCHLORIDE
  61. CANNABIS SATIVA FLOWERING TOP [Concomitant]
     Active Substance: CANNABIS SATIVA FLOWERING TOP
  62. XANAX [Concomitant]
     Active Substance: ALPRAZOLAM
  63. CIMZIA [Concomitant]
     Active Substance: CERTOLIZUMAB PEGOL

REACTIONS (5)
  - Chronic kidney disease [Not Recovered/Not Resolved]
  - Crohn^s disease [Not Recovered/Not Resolved]
  - Abdominal discomfort [Not Recovered/Not Resolved]
  - Abdominal pain [Unknown]
  - Gastric ulcer [Unknown]

NARRATIVE: CASE EVENT DATE: 20090101
